FAERS Safety Report 18638221 (Version 1)
Quarter: 2020Q4

REPORT INFORMATION
  Report Type: Spontaneous
  Country: US (occurrence: US)
  Receive Date: 20201218
  Receipt Date: 20201218
  Transmission Date: 20210114
  Serious: No
  Sender: FDA-Public Use
  Company Number: US-PFIZER INC-2020498818

PATIENT
  Age: 37 Year
  Sex: Female

DRUGS (1)
  1. SIROLIMUS. [Suspect]
     Active Substance: SIROLIMUS

REACTIONS (4)
  - Therapy non-responder [Unknown]
  - Swelling face [Unknown]
  - Scar pain [Unknown]
  - Condition aggravated [Unknown]
